FAERS Safety Report 6639634-2 (Version None)
Quarter: 2010Q1

REPORT INFORMATION
  Report Type: 
  Country: None (occurrence: None)
  Receive Date: 20100318
  Receipt Date: 20100302
  Transmission Date: 20100710
  Serious: No
  Sender: FDA-Public Use
  Company Number: US-ROXANE LABORATORIES, INC.-2010-RO-00273RO

PATIENT
  Sex: Female

DRUGS (7)
  1. AZATHIOPRINE [Suspect]
     Indication: COLITIS MICROSCOPIC
     Dosage: 50 MG
     Route: 048
     Dates: start: 20100228
  2. PREDNISONE [Suspect]
     Dosage: 20 MG
     Route: 048
     Dates: start: 20090701
  3. THYROID TAB [Concomitant]
  4. POTASSIUM [Concomitant]
  5. CALCIUM [Concomitant]
  6. MULTI-VITAMIN [Concomitant]
  7. VITAMIN D [Concomitant]

REACTIONS (5)
  - ABDOMINAL PAIN UPPER [None]
  - ASTHENIA [None]
  - DIARRHOEA [None]
  - NAUSEA [None]
  - REBOUND EFFECT [None]
